FAERS Safety Report 5507534-7 (Version None)
Quarter: 2007Q4

REPORT INFORMATION
  Report Type: 
  Country: None (occurrence: None)
  Receive Date: 20071105
  Receipt Date: 20071105
  Transmission Date: 20080405
  Serious: No
  Sender: FDA-Public Use
  Company Number: None

PATIENT
  Age: 52 Year
  Sex: Female

DRUGS (3)
  1. OMNISCAN [Suspect]
     Indication: DRUG USE FOR UNKNOWN INDICATION
     Dosage: X1   IV
     Route: 042
     Dates: start: 20071031, end: 20071031
  2. VERSED [Concomitant]
  3. MIDAZOLAM HCL [Concomitant]

REACTIONS (2)
  - HEADACHE [None]
  - NAUSEA [None]
